FAERS Safety Report 15468068 (Version 1)
Quarter: 2018Q4

REPORT INFORMATION
  Report Type: Spontaneous
  Country: TH (occurrence: TH)
  Receive Date: 20181005
  Receipt Date: 20181005
  Transmission Date: 20190204
  Serious: Yes (Death, Hospitalization)
  Sender: FDA-Public Use
  Company Number: TH-BAXTER-2018BAX024747

PATIENT
  Age: 50 Year
  Sex: Male

DRUGS (1)
  1. DIANEAL PD-2 WITH DEXTROSE [Suspect]
     Active Substance: CALCIUM CHLORIDE\DEXTROSE\MAGNESIUM CHLORIDE\SODIUM CHLORIDE\SODIUM LACTATE
     Indication: PERITONEAL DIALYSIS
     Route: 033
     Dates: start: 20180209, end: 20180920

REACTIONS (4)
  - Basal ganglia haemorrhage [Fatal]
  - Diarrhoea [Unknown]
  - Basal ganglia stroke [Fatal]
  - Vomiting [Unknown]

NARRATIVE: CASE EVENT DATE: 20180915
